FAERS Safety Report 9684804 (Version 3)
Quarter: 2013Q4

REPORT INFORMATION
  Report Type: Spontaneous
  Country: SA (occurrence: SA)
  Receive Date: 20131112
  Receipt Date: 20131216
  Transmission Date: 20140711
  Serious: Yes (Hospitalization, Other)
  Sender: FDA-Public Use
  Company Number: PHHY2013SA127897

PATIENT
  Age: 28 Year
  Sex: Female
  Weight: 44 kg

DRUGS (4)
  1. GILENYA [Suspect]
     Dosage: 0.5 MG, UNK
     Route: 048
     Dates: start: 20131027
  2. VOLTAREN//DICLOFENAC [Concomitant]
     Route: 030
     Dates: start: 20131027, end: 20131027
  3. TEGRETOL [Concomitant]
     Dates: end: 20131028
  4. DEPAKIN [Concomitant]
     Indication: CONVULSION

REACTIONS (20)
  - Hepatic enzyme increased [Not Recovered/Not Resolved]
  - Alanine aminotransferase increased [Unknown]
  - Gamma-glutamyltransferase increased [Unknown]
  - Aspartate aminotransferase increased [Unknown]
  - Rash [Not Recovered/Not Resolved]
  - Pyrexia [Recovering/Resolving]
  - Eye oedema [Not Recovered/Not Resolved]
  - Generalised erythema [Not Recovered/Not Resolved]
  - Pneumonia [Unknown]
  - Lung infiltration [Unknown]
  - Vomiting [Recovering/Resolving]
  - Nausea [Recovering/Resolving]
  - Abdominal pain [Recovering/Resolving]
  - Diarrhoea [Recovering/Resolving]
  - Blood bilirubin increased [Unknown]
  - Lymphocytosis [Unknown]
  - Hypoalbuminaemia [Unknown]
  - Pruritus [Not Recovered/Not Resolved]
  - Blood alkaline phosphatase increased [Unknown]
  - Lymphopenia [Unknown]
